FAERS Safety Report 5302587-3 (Version None)
Quarter: 2007Q2

REPORT INFORMATION
  Report Type: 
  Country: None (occurrence: None)
  Receive Date: 20070419
  Receipt Date: 20070416
  Transmission Date: 20071010
  Serious: Yes (Other)
  Sender: FDA-Public Use
  Company Number: KR-BOEHRINGER INGELHEIM GMBH, GERMANY-2007-DE-00810GD

PATIENT

DRUGS (4)
  1. ASPIRIN [Suspect]
     Indication: ANTIPLATELET THERAPY
  2. CILOSTAZOL [Suspect]
     Indication: ANTIPLATELET THERAPY
  3. CLOPIDOGREL [Suspect]
     Indication: ANTIPLATELET THERAPY
  4. DRUG, ELUTING FROM CORONARY STENT [Suspect]

REACTIONS (2)
  - CORONARY ARTERY RESTENOSIS [None]
  - THROMBOSIS IN DEVICE [None]
